FAERS Safety Report 23750660 (Version 1)
Quarter: 2024Q2

REPORT INFORMATION
  Report Type: Spontaneous
  Country: BR (occurrence: BR)
  Receive Date: 20240417
  Receipt Date: 20240417
  Transmission Date: 20240715
  Serious: Yes (Hospitalization)
  Sender: FDA-Public Use
  Company Number: BR-TASMAN PHARMA, INC.-2024TSM00177

PATIENT
  Age: 35 Year
  Sex: Male

DRUGS (2)
  1. CLOZAPINE [Suspect]
     Active Substance: CLOZAPINE
     Indication: Schizophrenia
     Dosage: GRADUALLY TITRATED THE CLOZAPINE DOSE UP TO 400 MG/DAY
  2. CLOZAPINE [Suspect]
     Active Substance: CLOZAPINE
     Dosage: DOSE WAS INCREASED BY 25 MG EVERY 4 DAYS UP TO A DOSE OF 300 MG/DAY

REACTIONS (2)
  - Aplasia pure red cell [Recovered/Resolved]
  - Anaemia [Recovered/Resolved]
